FAERS Safety Report 4689647-5 (Version None)
Quarter: 2005Q2

REPORT INFORMATION
  Report Type: 
  Country: None (occurrence: None)
  Receive Date: 20050614
  Receipt Date: 20050302
  Transmission Date: 20051028
  Serious: Yes (Hospitalization)
  Sender: FDA-Public Use
  Company Number: PHBS2005NO03165

PATIENT
  Age: 36 Year
  Sex: Female

DRUGS (1)
  1. VOLTAREN [Suspect]
     Indication: PAIN
     Dosage: 1 DF, ONCE/SINGLE
     Route: 030
     Dates: start: 20040204, end: 20040204

REACTIONS (8)
  - CARDIOVASCULAR DISORDER [None]
  - INJECTION SITE INDURATION [None]
  - INJECTION SITE NECROSIS [None]
  - INJECTION SITE PAIN [None]
  - MEDICATION ERROR [None]
  - SKIN GRAFT [None]
  - TRANSPLANT [None]
  - VENA CAVA THROMBOSIS [None]
